FAERS Safety Report 19073471 (Version 2)
Quarter: 2021Q2

REPORT INFORMATION
  Report Type: Spontaneous
  Country: US (occurrence: US)
  Receive Date: 20210330
  Receipt Date: 20210421
  Transmission Date: 20210717
  Serious: Yes (Other)
  Sender: FDA-Public Use
  Company Number: US-JUBILANT CADISTA PHARMACEUTICALS-2021JUB00091

PATIENT
  Sex: Female

DRUGS (6)
  1. LAMOTRIGINE (NON?COMPANY) [Suspect]
     Active Substance: LAMOTRIGINE
     Dosage: UNK, 2X/DAY
  2. LAMOTRIGINE (NON?COMPANY) [Suspect]
     Active Substance: LAMOTRIGINE
     Dosage: UNK, 2X/DAY
  3. LAMOTRIGINE (NON?COMPANY) [Suspect]
     Active Substance: LAMOTRIGINE
     Dosage: UNK, 2X/DAY (UNK MANUFACTURER)
  4. LAMOTRIGINE (NON?COMPANY) [Suspect]
     Active Substance: LAMOTRIGINE
     Indication: SEIZURE PROPHYLAXIS
     Dosage: UNK, 2X/DAY
  5. LAMOTRIGINE (NON?COMPANY) [Suspect]
     Active Substance: LAMOTRIGINE
     Dosage: UNK, 2X/DAY (UNK MANUFACTURER)
  6. LAMOTRIGINE (NON?COMPANY) [Suspect]
     Active Substance: LAMOTRIGINE
     Indication: SEIZURE PROPHYLAXIS
     Dosage: UNK, 2X/DAY

REACTIONS (2)
  - Reaction to excipient [Recovered/Resolved]
  - Blindness [Recovered/Resolved]
